FAERS Safety Report 8014831-2 (Version None)
Quarter: 2011Q4

REPORT INFORMATION
  Report Type: 
  Country: None (occurrence: None)
  Receive Date: 20111229
  Receipt Date: 20111227
  Transmission Date: 20120403
  Serious: Yes (Other)
  Sender: FDA-Public Use
  Company Number: US-PFIZER INC-2011299845

PATIENT
  Sex: Male
  Weight: 96.145 kg

DRUGS (17)
  1. NORTRIPTYLINE [Concomitant]
     Indication: SLEEP DISORDER
     Dosage: 25 MG, EVERY NIGHT
  2. PREDNISOLONE [Concomitant]
     Indication: IRITIS
     Dosage: UNK
  3. BRIMONIDINE TARTRATE [Concomitant]
     Dosage: 0.2% UNK
  4. GLIPIZIDE [Concomitant]
     Indication: DIABETES MELLITUS INADEQUATE CONTROL
     Dosage: 5 MG
  5. HYDROCODONE [Concomitant]
     Indication: BACK PAIN
  6. NEURONTIN [Suspect]
     Indication: NEUROPATHY PERIPHERAL
     Dosage: 600 MG, 3X/DAY
     Dates: start: 20111019, end: 20111128
  7. NEURONTIN [Suspect]
     Indication: DIABETIC NEUROPATHY
     Dosage: 300 MG, 3X/DAY
     Dates: start: 20111006
  8. HUMULIN 70/30 [Concomitant]
     Indication: DIABETES MELLITUS INADEQUATE CONTROL
     Dosage: UNK
  9. NIZATIDINE [Concomitant]
     Indication: GASTROOESOPHAGEAL REFLUX DISEASE
     Dosage: 50 MG
  10. FINASTERIDE [Concomitant]
     Indication: HYPERTENSION
     Dosage: 5 MG, DAILY
  11. GEMFIBROZIL [Concomitant]
     Indication: BLOOD CHOLESTEROL ABNORMAL
     Dosage: 600 MG
  12. NEURONTIN [Suspect]
     Dosage: 100 MG, EVERY BEDTIME THREE TIMES A DAY
     Route: 048
     Dates: start: 20111101, end: 20111101
  13. HYDROCODONE [Concomitant]
     Indication: PAIN IN EXTREMITY
     Dosage: 7.5 MG
  14. NIZATIDINE [Concomitant]
     Dosage: 150 MG, EVERY NIGHT
  15. ALBUTEROL SULFATE [Concomitant]
     Indication: CHRONIC OBSTRUCTIVE PULMONARY DISEASE
     Dosage: UNK
  16. PROAIR HFA [Concomitant]
     Dosage: UNK, 2-P FOUR TIMES A DAY AND AS NEEDED
  17. PREDNISONE [Concomitant]
     Indication: WEGENER'S GRANULOMATOSIS
     Dosage: 10 MG, DAILY

REACTIONS (7)
  - DRUG INEFFECTIVE [None]
  - BLOOD UREA ABNORMAL [None]
  - ASTHENIA [None]
  - FALL [None]
  - SYNCOPE [None]
  - BLOOD CREATININE ABNORMAL [None]
  - BLOOD GLUCOSE INCREASED [None]
